FAERS Safety Report 5041558-1 (Version None)
Quarter: 2006Q2

REPORT INFORMATION
  Report Type: 
  Country: None (occurrence: None)
  Receive Date: 20060627
  Receipt Date: 20060613
  Transmission Date: 20061013
  Serious: Yes (Hospitalization)
  Sender: FDA-Public Use
  Company Number: 2006075828

PATIENT
  Age: 51 Year
  Sex: Female

DRUGS (1)
  1. CELEBREX [Suspect]
     Indication: PAIN
     Dosage: 100 MG (100 MG, 1 IN 1 D)
     Dates: start: 20040301

REACTIONS (4)
  - CARDIAC DISORDER [None]
  - CEREBROVASCULAR ACCIDENT [None]
  - LOSS OF CONSCIOUSNESS [None]
  - STENT PLACEMENT [None]
